FAERS Safety Report 6194597-1 (Version None)
Quarter: 2009Q2

REPORT INFORMATION
  Report Type: 
  Country: None (occurrence: None)
  Receive Date: 20090519
  Receipt Date: 20070315
  Transmission Date: 20091009
  Serious: Yes (Hospitalization, Other)
  Sender: FDA-Public Use
  Company Number: US-ASTRAZENECA-2006UW11030

PATIENT
  Age: 8834 Day
  Sex: Male
  Weight: 68 kg

DRUGS (22)
  1. SEROQUEL [Suspect]
     Indication: ANXIETY
     Dosage: 100 - 600 MG
     Route: 048
     Dates: start: 20010705
  2. SEROQUEL [Suspect]
     Indication: SLEEP DISORDER
     Dosage: 100 - 600 MG
     Route: 048
     Dates: start: 20010705
  3. ZYPREXA [Suspect]
     Route: 065
  4. ZOLOFT [Concomitant]
     Dosage: 50-100 MG
     Route: 048
  5. RISPERDAL CONSTA [Concomitant]
     Route: 065
  6. ATIVAN [Concomitant]
     Route: 030
  7. ATIVAN [Concomitant]
     Dosage: 1-2 MG
     Route: 048
  8. WELLBUTRIN [Concomitant]
     Route: 048
  9. REVIA [Concomitant]
     Route: 048
  10. CAMPRAL [Concomitant]
     Route: 048
  11. HALDOL [Concomitant]
     Route: 030
  12. HALDOL [Concomitant]
     Dosage: 5 - 20 MG
     Route: 048
  13. COGENTIN [Concomitant]
     Route: 030
  14. COGENTIN [Concomitant]
     Route: 048
  15. BENADRYL [Concomitant]
     Route: 048
  16. TYLENOL [Concomitant]
     Indication: HEADACHE
     Route: 065
  17. PHENERGAN [Concomitant]
     Indication: NAUSEA
     Route: 048
  18. IMODIUM [Concomitant]
     Indication: DIARRHOEA
     Route: 048
  19. TRANXENE - T [Concomitant]
     Dosage: 15-90 MG
     Route: 048
  20. REMERON SOLTAB [Concomitant]
     Dosage: 15-30 MG
     Route: 048
  21. PEPCID [Concomitant]
     Dosage: 20-40 MG
     Route: 048
  22. ANTABUSE [Concomitant]
     Route: 048

REACTIONS (21)
  - ABDOMINAL PAIN UPPER [None]
  - AFFECTIVE DISORDER [None]
  - ALCOHOLISM [None]
  - ANOREXIA [None]
  - ASTHENIA [None]
  - BLINDNESS [None]
  - BRONCHITIS [None]
  - DRY MOUTH [None]
  - GASTROOESOPHAGEAL REFLUX DISEASE [None]
  - INSOMNIA [None]
  - LACERATION [None]
  - LEFT VENTRICULAR HYPERTROPHY [None]
  - MUSCLE TIGHTNESS [None]
  - MYOCARDIAL INFARCTION [None]
  - POLYSUBSTANCE DEPENDENCE [None]
  - PSYCHOTIC DISORDER [None]
  - RASH [None]
  - SCHIZOAFFECTIVE DISORDER [None]
  - SEXUAL DYSFUNCTION [None]
  - SUICIDAL IDEATION [None]
  - WEIGHT DECREASED [None]
